FAERS Safety Report 6727684-7 (Version None)
Quarter: 2010Q2

REPORT INFORMATION
  Report Type: 
  Country: None (occurrence: None)
  Receive Date: 20100517
  Receipt Date: 20100506
  Transmission Date: 20101027
  Serious: Yes (Hospitalization, Other)
  Sender: FDA-Public Use
  Company Number: US-ROCHE-687974

PATIENT
  Sex: Male

DRUGS (19)
  1. PEGINTERFERON ALFA-2A [Suspect]
     Indication: HEPATITIS C
     Dosage: FORM: PRE-FILLED SYRINGE;
     Route: 065
     Dates: start: 20090920
  2. PEGINTERFERON ALFA-2A [Suspect]
     Route: 065
  3. PEGINTERFERON ALFA-2A [Suspect]
     Route: 065
  4. PEGINTERFERON ALFA-2A [Suspect]
     Dosage: PATIENT IN WEEK 30 OF TREATMENT
     Route: 065
  5. PEGINTERFERON ALFA-2A [Suspect]
     Dosage: WEEK 33
     Route: 065
  6. RIBAVIRIN [Suspect]
     Indication: HEPATITIS C
     Dosage: NOTE: DIVIDED DOSES; PATIENT RECEIVED RIBASPHERE AND RIBAVIRIN (PAR)
     Route: 065
     Dates: start: 20090920
  7. LYRICA [Concomitant]
  8. FLUTICASONE PROPIONATE [Concomitant]
  9. ADVAIR DISKUS 100/50 [Concomitant]
  10. SKELAXIN [Concomitant]
  11. VITAMIN B-12 [Concomitant]
  12. COMBIVENT [Concomitant]
  13. OXYCODONE [Concomitant]
  14. LAMOTRIGINE [Concomitant]
     Dosage: FREQUENCY: AT BEDTIME
  15. MORPHINE [Concomitant]
  16. TRAZODONE HCL [Concomitant]
     Dosage: FREQUENCY: AT BED TIME
  17. LISINOPRIL [Concomitant]
  18. PROMETHAZINE [Concomitant]
  19. FENTANYL-75 [Concomitant]

REACTIONS (8)
  - BRONCHITIS [None]
  - DYSPNOEA [None]
  - HAEMORRHAGE [None]
  - INFECTION [None]
  - NERVE INJURY [None]
  - OBSTRUCTION [None]
  - OEDEMA PERIPHERAL [None]
  - WHITE BLOOD CELL COUNT DECREASED [None]
